FAERS Safety Report 10238098 (Version 3)
Quarter: 2014Q2

REPORT INFORMATION
  Report Type: Report from Study
  Country: GB (occurrence: GB)
  Receive Date: 20140616
  Receipt Date: 20140624
  Transmission Date: 20141212
  Serious: Yes (Hospitalization)
  Sender: FDA-Public Use
  Company Number: GB-CELGENEUS-167-20785-14060366

PATIENT
  Age: 75 Year
  Sex: Male

DRUGS (3)
  1. THALIDOMIDE [Suspect]
     Indication: PLASMA CELL MYELOMA
     Dosage: 50 MILLIGRAM
     Route: 048
     Dates: start: 20140513, end: 20140609
  2. CYCLOPHOSPHAMIDE [Suspect]
     Indication: PLASMA CELL MYELOMA
     Dosage: 500 MILLIGRAM
     Route: 048
     Dates: start: 20140513, end: 20140609
  3. DEXAMETHASONE [Suspect]
     Indication: PLASMA CELL MYELOMA
     Dosage: 20 MILLIGRAM
     Route: 048
     Dates: start: 20140513, end: 20140609

REACTIONS (6)
  - Ageusia [Recovering/Resolving]
  - Decreased appetite [Recovering/Resolving]
  - Angina pectoris [Recovering/Resolving]
  - Constipation [Recovering/Resolving]
  - Angina pectoris [Recovering/Resolving]
  - Anaemia [Recovering/Resolving]
